FAERS Safety Report 5123540-9 (Version None)
Quarter: 2006Q3

REPORT INFORMATION
  Report Type: 
  Country: None (occurrence: None)
  Receive Date: 20060801
  Receipt Date: 20060428
  Transmission Date: 20061208
  Serious: Yes (Other)
  Sender: FDA-Public Use
  Company Number: 2006049824

PATIENT
  Age: 13 Year
  Sex: Male
  Weight: 39.4 kg

DRUGS (6)
  1. CAMPTOSAR [Suspect]
     Indication: RHABDOMYOSARCOMA
     Dosage: (25 MG,CYCLIC), INTRAVENOUS
     Route: 042
     Dates: start: 20060227
  2. BACTRIM [Concomitant]
  3. ZOFRAN [Concomitant]
  4. LOPERAMIDE HCL [Concomitant]
  5. VALIUM [Concomitant]
  6. OXYCODONE HCL [Concomitant]

REACTIONS (2)
  - DEHYDRATION [None]
  - HAEMATURIA [None]
